FAERS Safety Report 10969817 (Version 1)
Quarter: 2015Q1

REPORT INFORMATION
  Report Type: Other
  Country: GB (occurrence: GB)
  Receive Date: 20150331
  Receipt Date: 20150331
  Transmission Date: 20150721
  Serious: Yes (Hospitalization)
  Sender: FDA-Public Use
  Company Number: GB-MYLANLABS-2015M1008776

PATIENT

DRUGS (2)
  1. CLARITHROMYCIN. [Suspect]
     Active Substance: CLARITHROMYCIN
     Dosage: 500 MG, BID
     Route: 048
     Dates: start: 20121103, end: 20130109
  2. PIPERACILLIN AND TAZOBACTAM [Suspect]
     Active Substance: PIPERACILLIN SODIUM\TAZOBACTAM SODIUM
     Indication: PNEUMONIA
     Dosage: 4.5 G, TID (PIPERACILLIN 4G / TAZOBACTAM 500MG)
     Route: 041
     Dates: start: 20121231, end: 20130103

REACTIONS (6)
  - Confusional state [Unknown]
  - Acute kidney injury [Unknown]
  - Clostridium test positive [Recovered/Resolved]
  - Fall [Unknown]
  - Malaise [Unknown]
  - White blood cell count increased [Unknown]

NARRATIVE: CASE EVENT DATE: 20121214
